FAERS Safety Report 17362347 (Version 1)
Quarter: 2020Q1

REPORT INFORMATION
  Report Type: Spontaneous
  Country: US (occurrence: US)
  Receive Date: 20200203
  Receipt Date: 20200203
  Transmission Date: 20200409
  Serious: No
  Sender: FDA-Public Use
  Company Number: US-BRISTOL-MYERS SQUIBB COMPANY-BMS-2020-007993

PATIENT
  Age: 72 Year
  Sex: Male

DRUGS (3)
  1. SPIRIVA [Concomitant]
     Active Substance: TIOTROPIUM BROMIDE MONOHYDRATE
     Indication: PRODUCT USED FOR UNKNOWN INDICATION
     Dosage: UNK
     Route: 065
  2. ELIQUIS [Suspect]
     Active Substance: APIXABAN
     Indication: DEEP VEIN THROMBOSIS
     Dosage: 20 MG PER DAY FOR ONE WEEK
     Route: 048
     Dates: start: 20200125
  3. ELIQUIS [Suspect]
     Active Substance: APIXABAN
     Indication: PRODUCT USED FOR UNKNOWN INDICATION
     Dosage: 10 MG PER DAY
     Route: 048

REACTIONS (1)
  - Pain [Unknown]

NARRATIVE: CASE EVENT DATE: 20200125
